FAERS Safety Report 9710379 (Version 2)
Quarter: 2014Q1

REPORT INFORMATION
  Report Type: Spontaneous
  Country: US (occurrence: US)
  Receive Date: 20131126
  Receipt Date: 20140210
  Transmission Date: 20141002
  Serious: Yes (Other)
  Sender: FDA-Public Use
  Company Number: US-ELI_LILLY_AND_COMPANY-US201311005315

PATIENT
  Sex: Male
  Weight: 117 kg

DRUGS (2)
  1. HUMATROPE [Suspect]
     Indication: GROWTH HORMONE DEFICIENCY
     Dosage: 20 UNK, QD
     Route: 065
     Dates: start: 1993
  2. HUMATROPE [Suspect]
     Indication: HYPOPITUITARISM

REACTIONS (1)
  - Blindness [Unknown]
